FAERS Safety Report 23457329 (Version 1)
Quarter: 2024Q1

REPORT INFORMATION
  Report Type: Spontaneous
  Country: AU (occurrence: AU)
  Receive Date: 20240130
  Receipt Date: 20240130
  Transmission Date: 20240410
  Serious: Yes (Other)
  Sender: FDA-Public Use
  Company Number: AU-JNJFOC-20240165600

PATIENT

DRUGS (4)
  1. STELARA [Suspect]
     Active Substance: USTEKINUMAB
     Indication: Pouchitis
     Route: 058
  2. INFLIXIMAB [Suspect]
     Active Substance: INFLIXIMAB
     Indication: Pouchitis
     Route: 041
  3. ADALIMUMAB [Suspect]
     Active Substance: ADALIMUMAB\ISOPROPYL ALCOHOL
     Indication: Pouchitis
     Route: 065
  4. VEDOLIZUMAB [Suspect]
     Active Substance: VEDOLIZUMAB
     Indication: Pouchitis
     Route: 065

REACTIONS (12)
  - Clostridium difficile infection [Unknown]
  - Sepsis [Unknown]
  - Anaphylactic reaction [Unknown]
  - Abdominal abscess [Unknown]
  - Herpes zoster [Unknown]
  - Drug ineffective [Unknown]
  - Type IV hypersensitivity reaction [Unknown]
  - Headache [Unknown]
  - Injection site reaction [Unknown]
  - Nausea [Unknown]
  - Rash [Unknown]
  - Off label use [Unknown]
